FAERS Safety Report 12426575 (Version 3)
Quarter: 2016Q2

REPORT INFORMATION
  Report Type: Spontaneous
  Country: US (occurrence: US)
  Receive Date: 20160601
  Receipt Date: 20160623
  Transmission Date: 20160815
  Serious: Yes (Death, Hospitalization)
  Sender: FDA-Public Use
  Company Number: US-GILEAD-2016-0215257

PATIENT
  Age: 88 Year
  Sex: Female

DRUGS (1)
  1. ZYDELIG [Suspect]
     Active Substance: IDELALISIB
     Indication: CHRONIC LYMPHOCYTIC LEUKAEMIA
     Dosage: 100 MG, BID
     Route: 065

REACTIONS (5)
  - Colitis [Fatal]
  - Diarrhoea [Not Recovered/Not Resolved]
  - Ulcer [Unknown]
  - Vomiting [Unknown]
  - Diarrhoea [Recovered/Resolved]
